FAERS Safety Report 4607289-4 (Version None)
Quarter: 2005Q1

REPORT INFORMATION
  Report Type: 
  Country: None (occurrence: None)
  Receive Date: 20050309
  Receipt Date: 20050224
  Transmission Date: 20050727
  Serious: Yes (Hospitalization)
  Sender: FDA-Public Use
  Company Number: A-CH2005-08980

PATIENT
  Age: 78 Year
  Sex: Male

DRUGS (4)
  1. TRACLEER [Suspect]
     Indication: PULMONARY HYPERTENSION
     Dosage: 125 MG, BID, ORAL
     Route: 048
  2. DURAL (FUROSEMIDE) [Concomitant]
  3. ALBYL-E (MAGNESIUM OXIDE, ACETYLSALICYLIC ACID) [Concomitant]
  4. COZAAR [Concomitant]

REACTIONS (5)
  - FAECAL OCCULT BLOOD POSITIVE [None]
  - HAEMOGLOBIN DECREASED [None]
  - MELAENA [None]
  - MUCOUS MEMBRANE DISORDER [None]
  - OESOPHAGEAL DISORDER [None]
